FAERS Safety Report 14633656 (Version 4)
Quarter: 2018Q2

REPORT INFORMATION
  Report Type: Report from Study
  Country: ES (occurrence: ES)
  Receive Date: 20180314
  Receipt Date: 20180411
  Transmission Date: 20180711
  Serious: Yes (Other)
  Sender: FDA-Public Use
  Company Number: ES-AMGEN-ESPSL2018032767

PATIENT
  Age: 59 Year
  Sex: Female

DRUGS (7)
  1. HYDROCHLOROTHIAZIDE W/RAMIPRIL [Concomitant]
     Active Substance: HYDROCHLOROTHIAZIDE\RAMIPRIL
  2. EMCONCOR [Concomitant]
     Active Substance: BISOPROLOL FUMARATE
     Dosage: UNK
  3. BRILIQUE [Concomitant]
     Active Substance: TICAGRELOR
     Dosage: UNK
  4. RANITIDINE. [Concomitant]
     Active Substance: RANITIDINE
     Dosage: UNK
  5. SECALIP [Concomitant]
     Active Substance: FENOFIBRATE
     Dosage: UNK
  6. ADIRO [Concomitant]
     Active Substance: ASPIRIN
     Dosage: UNK
  7. REPATHA [Suspect]
     Active Substance: EVOLOCUMAB
     Indication: TYPE IIA HYPERLIPIDAEMIA
     Dosage: 140 MG, Q2WK
     Route: 065
     Dates: start: 20180220

REACTIONS (3)
  - Rheumatoid arthritis [Recovering/Resolving]
  - Systemic lupus erythematosus [Recovering/Resolving]
  - Influenza like illness [Recovering/Resolving]

NARRATIVE: CASE EVENT DATE: 20180222
